FAERS Safety Report 8052243-6 (Version None)
Quarter: 2012Q1

REPORT INFORMATION
  Report Type: 
  Country: None (occurrence: None)
  Receive Date: 20120118
  Receipt Date: 20120109
  Transmission Date: 20120608
  Serious: Yes (Hospitalization)
  Sender: FDA-Public Use
  Company Number: US-JNJFOC-20111204895

PATIENT
  Sex: Female
  Weight: 36.6 kg

DRUGS (36)
  1. HYDROCORTISONE [Suspect]
     Indication: PRODUCT USED FOR UNKNOWN INDICATION
  2. IRON [Concomitant]
  3. PIPERACILLIN AND TAZOBACTAM [Concomitant]
  4. VANCOMYCIN [Concomitant]
  5. BISACODYL [Concomitant]
  6. ONDANSETRON [Concomitant]
  7. REMICADE [Suspect]
     Indication: CROHN'S DISEASE
     Route: 042
     Dates: start: 20080205, end: 20090114
  8. DEXTRAN INJ [Concomitant]
     Route: 042
  9. LORAZEPAM [Concomitant]
  10. DIPHENHYDRAMINE HCL [Concomitant]
  11. METHOTREXATE [Suspect]
     Indication: PRODUCT USED FOR UNKNOWN INDICATION
  12. MORPHINE [Concomitant]
  13. MINERALS NOS [Concomitant]
  14. CHOLECALCIFEROL [Concomitant]
  15. ACETAMINOPHEN [Concomitant]
  16. CEFTRIAXONE [Concomitant]
  17. RANITIDINE [Concomitant]
  18. PANTOPRAZOLE [Concomitant]
  19. POLYETHYLENE GLYCOL [Concomitant]
  20. HUMIRA [Suspect]
     Indication: CROHN'S DISEASE
     Dates: start: 20090218
  21. CIPROFLOXACIN [Suspect]
     Indication: PRODUCT USED FOR UNKNOWN INDICATION
  22. PREVACID [Concomitant]
  23. LOPERAMIDE [Concomitant]
  24. ZINC SULFATE [Concomitant]
  25. MIDAZOLAM [Concomitant]
  26. FLAGYL [Suspect]
     Indication: PRODUCT USED FOR UNKNOWN INDICATION
  27. MULTI-VITAMINS [Concomitant]
  28. TPN [Concomitant]
  29. NALBUPHINE [Concomitant]
  30. FENTANYL [Concomitant]
  31. PREDNISONE [Suspect]
     Indication: PRODUCT USED FOR UNKNOWN INDICATION
  32. ANTIBIOTICS [Concomitant]
     Indication: INFLAMMATORY BOWEL DISEASE
  33. PEPTAMEN [Concomitant]
  34. FOLIC ACID [Concomitant]
  35. FISH OIL [Concomitant]
  36. KETOROLAC TROMETHAMINE [Concomitant]

REACTIONS (1)
  - ABDOMINAL ABSCESS [None]
